FAERS Safety Report 25767745 (Version 3)
Quarter: 2025Q3

REPORT INFORMATION
  Report Type: Spontaneous
  Country: US (occurrence: US)
  Receive Date: 20250905
  Receipt Date: 20250917
  Transmission Date: 20251020
  Serious: Yes (Other)
  Sender: APELLIS PHARMACEUTICALS
  Company Number: US-APELLIS-2025-APL-0001681

PATIENT

DRUGS (17)
  1. SYFOVRE [Suspect]
     Active Substance: PEGCETACOPLAN
     Indication: Dry age-related macular degeneration
     Dates: start: 20250829
  2. OCUVITE [Concomitant]
     Active Substance: VITAMINS
     Indication: Product used for unknown indication
  3. GABAPENTIN [Concomitant]
     Active Substance: GABAPENTIN
     Indication: Product used for unknown indication
  4. ASPIRIN [Concomitant]
     Active Substance: ASPIRIN
     Indication: Product used for unknown indication
  5. SYSTANE (HYPROMELLOSE 2910 (4000 MPA.S)) [Concomitant]
     Active Substance: HYPROMELLOSE 2910 (4000 MPA.S)
     Indication: Product used for unknown indication
     Route: 047
  6. ATROPINE [Concomitant]
     Active Substance: ATROPINE
     Indication: Product used for unknown indication
     Dosage: QDAY OS
  7. ATROPINE [Concomitant]
     Active Substance: ATROPINE
     Dosage: BID OS
  8. BRIMONIDINE [Concomitant]
     Active Substance: BRIMONIDINE TARTRATE
     Indication: Product used for unknown indication
     Dosage: 0.2% OPHTHALMIC SOLUTION 1 GTT
     Route: 047
  9. PREDNISOLONE ACETATE [Concomitant]
     Active Substance: PREDNISOLONE ACETATE
     Indication: Product used for unknown indication
     Dosage: 1% OPH. SUSP.
  10. VYZULTA [Concomitant]
     Active Substance: LATANOPROSTENE BUNOD
     Indication: Product used for unknown indication
     Dosage: 0.024% OPHTHALMIC SOLUTION 1 GTT QHS
     Route: 047
  11. MAXITROL [Concomitant]
     Active Substance: DEXAMETHASONE\NEOMYCIN SULFATE\POLYMYXIN B SULFATE
     Indication: Product used for unknown indication
     Dosage: QID OS
  12. PREDNISONE [Concomitant]
     Active Substance: PREDNISONE
     Indication: Product used for unknown indication
     Route: 048
  13. PREDNISONE [Concomitant]
     Active Substance: PREDNISONE
     Dosage: 3 TIMES A DAY
     Route: 048
  14. MOXIFLOXACIN [Concomitant]
     Active Substance: MOXIFLOXACIN
     Indication: Product used for unknown indication
     Dosage: TID
  15. NEPAFENAC [Concomitant]
     Active Substance: NEPAFENAC
     Indication: Product used for unknown indication
     Dosage: TID
  16. COSOPT [Concomitant]
     Active Substance: DORZOLAMIDE HYDROCHLORIDE\TIMOLOL MALEATE
     Indication: Product used for unknown indication
     Dosage: TID
  17. LATANOPROST [Concomitant]
     Active Substance: LATANOPROST
     Indication: Product used for unknown indication

REACTIONS (5)
  - Endophthalmitis [Recovering/Resolving]
  - Uveitis [Recovering/Resolving]
  - Product quality issue [Unknown]
  - Dry eye [Unknown]
  - Dry eye [Unknown]

NARRATIVE: CASE EVENT DATE: 20250829
